FAERS Safety Report 9887745 (Version 1)
Quarter: 2014Q1

REPORT INFORMATION
  Report Type: Spontaneous
  Country: US (occurrence: None)
  Receive Date: 20140207
  Receipt Date: 20140207
  Transmission Date: 20141002
  Serious: Yes (Hospitalization)
  Sender: FDA-Public Use
  Company Number: None

PATIENT
  Age: 58 Year
  Sex: Male
  Weight: 84 kg

DRUGS (1)
  1. SULFAMETHOXAZOLE/TRIMETHOPRIM [Suspect]
     Indication: INFECTION
     Route: 048
     Dates: start: 20130220, end: 20130301

REACTIONS (6)
  - Asthenia [None]
  - Upper respiratory tract infection [None]
  - Cough [None]
  - Respiratory tract congestion [None]
  - Nephropathy toxic [None]
  - Renal failure acute [None]
